FAERS Safety Report 9455731 (Version 1)
Quarter: 2013Q3

REPORT INFORMATION
  Report Type: Report from Study
  Country: BR (occurrence: BR)
  Receive Date: 20130813
  Receipt Date: 20130813
  Transmission Date: 20140515
  Serious: Yes (Other)
  Sender: FDA-Public Use
  Company Number: BR-BAYER-2013-095902

PATIENT
  Age: 54 Year
  Sex: Female

DRUGS (6)
  1. BETAFERON [Suspect]
     Indication: MULTIPLE SCLEROSIS
     Dosage: 1 ML, QOD
     Route: 058
     Dates: start: 20130801
  2. BACLOFEN [Concomitant]
     Indication: MULTIPLE SCLEROSIS
     Dosage: 1 DF, BID
     Route: 048
     Dates: start: 201307
  3. BROMAZEPAM [Concomitant]
     Indication: SLEEP DISORDER THERAPY
     Dosage: 1 DF, QD
     Route: 048
     Dates: start: 2010
  4. PLASIL [Concomitant]
     Indication: PREMEDICATION
     Dosage: 1 DF, UNK
     Dates: start: 20130803
  5. PLASIL [Concomitant]
     Indication: VOMITING
  6. TANDENE [Concomitant]
     Indication: PREMEDICATION
     Dosage: 1 DF, UNK
     Dates: start: 20130803

REACTIONS (5)
  - Abasia [Not Recovered/Not Resolved]
  - Musculoskeletal stiffness [Not Recovered/Not Resolved]
  - Vomiting [Recovered/Resolved]
  - Myalgia [Not Recovered/Not Resolved]
  - Pyrexia [Not Recovered/Not Resolved]
